FAERS Safety Report 4331806-5 (Version None)
Quarter: 2004Q2

REPORT INFORMATION
  Report Type: 
  Country: None (occurrence: None)
  Receive Date: 20040405
  Receipt Date: 20030912
  Transmission Date: 20050107
  Serious: No
  Sender: FDA-Public Use
  Company Number: US-GLAXOSMITHKLINE-A0425705A

PATIENT
  Age: 56 Year
  Sex: Female

DRUGS (11)
  1. FLOVENT [Suspect]
     Indication: ASTHMA
     Dosage: 2PUFF TWICE PER DAY
     Route: 055
  2. DUONEB [Concomitant]
  3. ACCOLATE [Concomitant]
  4. COMBIVENT [Concomitant]
  5. PREDNISONE [Concomitant]
  6. PREMARIN [Concomitant]
  7. KLONOPIN [Concomitant]
  8. VIOXX [Concomitant]
  9. LIBRAX [Concomitant]
  10. ZOMIG [Concomitant]
  11. VERELAN [Concomitant]

REACTIONS (3)
  - DIZZINESS [None]
  - DYSGEUSIA [None]
  - PHARMACEUTICAL PRODUCT COMPLAINT [None]
